FAERS Safety Report 8405809-5 (Version None)
Quarter: 2012Q2

REPORT INFORMATION
  Report Type: 
  Country: None (occurrence: None)
  Receive Date: 20120529
  Receipt Date: 20051214
  Transmission Date: 20120825
  Serious: Yes (Death)
  Sender: FDA-Public Use
  Company Number: 15691-USA-05-3157

PATIENT
  Age: 64 Year
  Sex: Male

DRUGS (7)
  1. TOLVAPTAN (TOLVAPTAN(V4.1)) 30MG [Suspect]
     Indication: CARDIAC FAILURE CONGESTIVE
     Dosage: 30 MG, QD, ORAL
     Route: 048
     Dates: start: 20051006
  2. DIGOXIN [Concomitant]
  3. ASPIRIN [Concomitant]
  4. ALLOPURINOL [Concomitant]
  5. GLICLAZIDE (GLICLAZIDE) [Concomitant]
  6. LOSARTAN POTASSIUM [Concomitant]
  7. FUROSEMIDE [Concomitant]

REACTIONS (1)
  - SUDDEN DEATH [None]
